FAERS Safety Report 8315585-2 (Version None)
Quarter: 2012Q2

REPORT INFORMATION
  Report Type: 
  Country: None (occurrence: None)
  Receive Date: 20120426
  Receipt Date: 20120419
  Transmission Date: 20120825
  Serious: Yes (Other)
  Sender: FDA-Public Use
  Company Number: CH-ROCHE-1030620

PATIENT
  Sex: Male

DRUGS (4)
  1. MABTHERA [Suspect]
     Indication: NON-HODGKIN'S LYMPHOMA
     Dosage: - PER 1 TOTYAL
     Route: 042
     Dates: start: 20120115, end: 20120115
  2. CYCLOPHOSPHAMIDE [Concomitant]
     Dates: start: 20120112, end: 20120115
  3. PREDNISONE [Concomitant]
     Dates: start: 20120112, end: 20120115
  4. DOXORUBICIN HCL [Concomitant]
     Dates: start: 20120112, end: 20120115

REACTIONS (4)
  - INJECTION SITE ERYTHEMA [None]
  - INJECTION SITE INFLAMMATION [None]
  - INJECTION SITE EXTRAVASATION [None]
  - INJECTION SITE INDURATION [None]
